FAERS Safety Report 8110943-3 (Version None)
Quarter: 2012Q1

REPORT INFORMATION
  Report Type: 
  Country: None (occurrence: None)
  Receive Date: 20120203
  Receipt Date: 20101216
  Transmission Date: 20120608
  Serious: Yes (Other)
  Sender: FDA-Public Use
  Company Number: US-GLAXOSMITHKLINE-A0900919A

PATIENT
  Sex: Female
  Weight: 67.3 kg

DRUGS (7)
  1. LAMICTAL [Suspect]
     Indication: CONVULSION
     Dosage: 100MG AT NIGHT
     Route: 048
     Dates: start: 20090101, end: 20100101
  2. LEVOTHYROXINE SODIUM [Concomitant]
  3. KEPPRA [Concomitant]
  4. LORTAB [Concomitant]
  5. CLONAZEPAM [Concomitant]
  6. ALBUTEROL [Concomitant]
  7. LORAZEPAM [Concomitant]

REACTIONS (2)
  - STEVENS-JOHNSON SYNDROME [None]
  - DRUG HYPERSENSITIVITY [None]
